FAERS Safety Report 4855619-0 (Version None)
Quarter: 2005Q4

REPORT INFORMATION
  Report Type: 
  Country: None (occurrence: None)
  Receive Date: 20051213
  Receipt Date: 20051128
  Transmission Date: 20060501
  Serious: Yes (Hospitalization, Disabling)
  Sender: FDA-Public Use
  Company Number: EWC050544115

PATIENT
  Age: 67 Year
  Sex: Female
  Weight: 57 kg

DRUGS (10)
  1. FORTEO [Suspect]
     Indication: OSTEOPOROSIS
     Dosage: 20 UG, DAILY (1/D), SUBCUTANOUS
     Route: 058
     Dates: start: 20041005, end: 20050509
  2. BRUFEN (IBUPROFEN) [Concomitant]
  3. FISH OIL (FISH OIL) [Concomitant]
  4. CENTYL (BENDROFLUMETHIAZIDED) [Concomitant]
  5. REMICADE [Concomitant]
  6. METHOTREXATE (METHOTREXATE  /00113801/) [Concomitant]
  7. TREVINA [Concomitant]
  8. VITAMIN B STRONG [Concomitant]
  9. FOLIC ACID [Concomitant]
  10. FORTEO [Concomitant]

REACTIONS (4)
  - CEREBROVASCULAR ACCIDENT [None]
  - COMPUTERISED TOMOGRAM ABNORMAL [None]
  - DRUG INTERACTION [None]
  - LACUNAR INFARCTION [None]
